FAERS Safety Report 4818111-5 (Version None)
Quarter: 2005Q4

REPORT INFORMATION
  Report Type: 
  Country: None (occurrence: None)
  Receive Date: 20051101
  Receipt Date: 20051101
  Transmission Date: 20060501
  Serious: Yes (Disabling, Other)
  Sender: FDA-Public Use
  Company Number: None

PATIENT
  Sex: Male
  Weight: 80.2867 kg

DRUGS (1)
  1. LAMISIL [Suspect]
     Indication: TINEA PEDIS
     Dosage: 250 MG DAILY ORAL
     Route: 048
     Dates: start: 20050812, end: 20050919

REACTIONS (3)
  - AMMONIA INCREASED [None]
  - LIVER FUNCTION TEST ABNORMAL [None]
  - OCULAR ICTERUS [None]
